FAERS Safety Report 25964481 (Version 1)
Quarter: 2025Q4

REPORT INFORMATION
  Report Type: Report from Study
  Country: US (occurrence: US)
  Receive Date: 20251027
  Receipt Date: 20251027
  Transmission Date: 20260117
  Serious: Yes (Other)
  Sender: ALEXION PHARMACEUTICALS
  Company Number: US-AstraZeneca-CH-00978892A

PATIENT
  Sex: Female
  Weight: 70.76 kg

DRUGS (2)
  1. OLAPARIB [Suspect]
     Active Substance: OLAPARIB
     Indication: Breast cancer
  2. VERZENIO [Suspect]
     Active Substance: ABEMACICLIB

REACTIONS (5)
  - Neuropathy peripheral [Unknown]
  - Nausea [Unknown]
  - Feeling abnormal [Unknown]
  - Pain [Unknown]
  - Pruritus [Unknown]
